FAERS Safety Report 17916954 (Version 1)
Quarter: 2020Q2

REPORT INFORMATION
  Report Type: Spontaneous
  Country: US (occurrence: US)
  Receive Date: 20200619
  Receipt Date: 20200619
  Transmission Date: 20200714
  Serious: No
  Sender: FDA-Public Use
  Company Number: US-JNJFOC-20200620495

PATIENT

DRUGS (2)
  1. PREZISTA [Suspect]
     Active Substance: DARUNAVIR ETHANOLATE
     Indication: PRODUCT USED FOR UNKNOWN INDICATION
     Route: 048
  2. PREZISTA [Suspect]
     Active Substance: DARUNAVIR ETHANOLATE
     Route: 048

REACTIONS (2)
  - Off label use [Unknown]
  - Product use issue [Unknown]
